FAERS Safety Report 18462165 (Version 1)
Quarter: 2020Q4

REPORT INFORMATION
  Report Type: Spontaneous
  Country: MX (occurrence: MX)
  Receive Date: 20201104
  Receipt Date: 20201104
  Transmission Date: 20210114
  Serious: Yes (Other)
  Sender: FDA-Public Use
  Company Number: MX-GLAXOSMITHKLINE-MX2020AMR206586

PATIENT
  Sex: Female

DRUGS (4)
  1. WELLBUTRIN [Suspect]
     Active Substance: BUPROPION HYDROCHLORIDE
     Indication: DEPRESSION
     Dosage: 2 DF, QD (TABLET)
     Route: 048
     Dates: start: 2007
  2. LEVOTHYROXINE. [Suspect]
     Active Substance: LEVOTHYROXINE
     Dosage: 150 MG IN COLD SEASON
  3. WELLBUTRIN [Suspect]
     Active Substance: BUPROPION HYDROCHLORIDE
     Dosage: 1.5 DF, QD (TABLET)
     Route: 048
     Dates: start: 2007
  4. LEVOTHYROXINE. [Suspect]
     Active Substance: LEVOTHYROXINE
     Indication: PRODUCT USED FOR UNKNOWN INDICATION
     Dosage: 100 MG IN HOT SEASON

REACTIONS (12)
  - Hypothyroidism [Unknown]
  - Anxiety [Unknown]
  - Product dose omission issue [Unknown]
  - Off label use [Unknown]
  - Loss of personal independence in daily activities [Unknown]
  - Fatigue [Unknown]
  - Product availability issue [Unknown]
  - Depression [Unknown]
  - Malaise [Unknown]
  - Wrong technique in product usage process [Unknown]
  - Withdrawal syndrome [Unknown]
  - Hypokinesia [Unknown]

NARRATIVE: CASE EVENT DATE: 2007
